FAERS Safety Report 8199513-9 (Version None)
Quarter: 2012Q1

REPORT INFORMATION
  Report Type: 
  Country: None (occurrence: None)
  Receive Date: 20120310
  Receipt Date: 20120308
  Transmission Date: 20120608
  Serious: Yes (Hospitalization)
  Sender: FDA-Public Use
  Company Number: GB-ABBOTT-12P-167-0913245-00

PATIENT
  Sex: Male

DRUGS (2)
  1. HUMIRA [Suspect]
     Indication: JUVENILE ARTHRITIS
     Dosage: EVERY 2/52
     Route: 058
     Dates: start: 20111128, end: 20120304
  2. EMLA [Concomitant]
     Indication: PRODUCT USED FOR UNKNOWN INDICATION

REACTIONS (6)
  - JOINT EFFUSION [None]
  - PAIN IN EXTREMITY [None]
  - INJECTION SITE PAIN [None]
  - LETHARGY [None]
  - OEDEMA PERIPHERAL [None]
  - ABSCESS [None]
